FAERS Safety Report 24898168 (Version 1)
Quarter: 2025Q1

REPORT INFORMATION
  Report Type: Report from Study
  Country: CN (occurrence: CN)
  Receive Date: 20250129
  Receipt Date: 20250129
  Transmission Date: 20250408
  Serious: Yes (Other)
  Sender: ALEXION PHARMACEUTICALS
  Company Number: CN-ASTRAZENECA-202501GLO023631CN

PATIENT
  Age: 63 Year
  Weight: 47.3 kg

DRUGS (4)
  1. OSIMERTINIB [Suspect]
     Active Substance: OSIMERTINIB
     Indication: Non-small cell lung cancer
     Dosage: 80 MILLIGRAM, QD
  2. ESTAZOLAM [Concomitant]
     Active Substance: ESTAZOLAM
     Route: 065
  3. ESTAZOLAM [Concomitant]
     Active Substance: ESTAZOLAM
     Route: 065
  4. DEXAMETHASONE SODIUM PHOSPHATE [Concomitant]
     Active Substance: DEXAMETHASONE SODIUM PHOSPHATE
     Indication: Prophylaxis
     Route: 065

REACTIONS (1)
  - Anaemia of malignant disease [Not Recovered/Not Resolved]
